FAERS Safety Report 7058343-1 (Version None)
Quarter: 2010Q4

REPORT INFORMATION
  Report Type: 
  Country: None (occurrence: None)
  Receive Date: 20101022
  Receipt Date: 20101013
  Transmission Date: 20110411
  Serious: No
  Sender: FDA-Public Use
  Company Number: US-PFIZER INC-2010130844

PATIENT
  Sex: Female
  Weight: 49.887 kg

DRUGS (2)
  1. LIPITOR [Suspect]
     Indication: BLOOD CHOLESTEROL INCREASED
     Dosage: 20 MG, 1X/DAY
     Route: 048
     Dates: start: 20080101, end: 20101001
  2. TRIAMTERENE [Concomitant]
     Dosage: UNK

REACTIONS (3)
  - FEELING DRUNK [None]
  - FEELING HOT [None]
  - NERVOUSNESS [None]
